FAERS Safety Report 5537146-0 (Version None)
Quarter: 2007Q4

REPORT INFORMATION
  Report Type: 
  Country: None (occurrence: None)
  Receive Date: 20071207
  Receipt Date: 20071127
  Transmission Date: 20080405
  Serious: Yes (Hospitalization)
  Sender: FDA-Public Use
  Company Number: US-ASTRAZENECA-2007UW17003

PATIENT
  Age: 654 Month
  Sex: Male
  Weight: 88.6 kg

DRUGS (16)
  1. SEROQUEL [Suspect]
     Indication: DEPRESSION
     Route: 048
     Dates: start: 20031016
  2. WELLBUTRIN [Concomitant]
     Route: 048
  3. REMERON [Concomitant]
     Route: 048
     Dates: end: 20030101
  4. TOPROL-XL [Concomitant]
     Route: 048
  5. LIPITOR [Concomitant]
     Route: 048
  6. AVANDIA [Concomitant]
     Route: 048
     Dates: end: 20040107
  7. IBUPROFEN [Concomitant]
     Route: 048
  8. IBUPROFEN [Concomitant]
     Route: 048
  9. NIACIN [Concomitant]
     Route: 048
  10. PLAVIX [Concomitant]
     Route: 048
     Dates: start: 20050322
  11. LISINOPRIL [Concomitant]
     Route: 048
  12. NITROGLYCERIN [Concomitant]
     Route: 060
  13. MIRTAZAPINE [Concomitant]
     Route: 048
  14. OMEPRAZOLE [Concomitant]
     Route: 048
  15. BETAMETHASONE DIPROPIONATE [Concomitant]
  16. LORAZEPAM [Concomitant]

REACTIONS (12)
  - BLOOD PRESSURE INCREASED [None]
  - CELLULITIS [None]
  - CORONARY ARTERY STENOSIS [None]
  - DERMAL CYST [None]
  - DERMATITIS [None]
  - DIABETES MELLITUS [None]
  - DIABETIC COMA [None]
  - GLYCOSYLATED HAEMOGLOBIN INCREASED [None]
  - MULTIPLE INJURIES [None]
  - MYOCARDIAL INFARCTION [None]
  - PANCREATITIS [None]
  - TYPE 2 DIABETES MELLITUS [None]
